FAERS Safety Report 14838715 (Version 1)
Quarter: 2018Q2

REPORT INFORMATION
  Report Type: Spontaneous
  Country: US (occurrence: US)
  Receive Date: 20180418
  Receipt Date: 20180418
  Transmission Date: 20180711
  Serious: Yes (Hospitalization)
  Sender: FDA-Public Use
  Company Number: None

PATIENT
  Age: 17 Year
  Sex: Male
  Weight: 79.85 kg

DRUGS (6)
  1. CYTARABINE. [Suspect]
     Active Substance: CYTARABINE
     Dates: end: 20140331
  2. DAUNORUBICIN [Suspect]
     Active Substance: DAUNORUBICIN
     Dates: end: 20140422
  3. PREDNISONE. [Suspect]
     Active Substance: PREDNISONE
     Dates: end: 20140428
  4. METHOTREXATE. [Suspect]
     Active Substance: METHOTREXATE
     Dates: end: 20140428
  5. VINCRISTINE SULFATE. [Suspect]
     Active Substance: VINCRISTINE SULFATE
     Dates: end: 20140423
  6. ONCASPAR [Suspect]
     Active Substance: PEGASPARGASE
     Dates: end: 20140403

REACTIONS (6)
  - Myeloproliferative neoplasm [None]
  - Chronic myelomonocytic leukaemia [None]
  - Monocytosis [None]
  - Thrombocytopenia [None]
  - White blood cell count increased [None]
  - Myelodysplastic syndrome [None]

NARRATIVE: CASE EVENT DATE: 20180122
